FAERS Safety Report 8313321-7 (Version None)
Quarter: 2012Q2

REPORT INFORMATION
  Report Type: 
  Country: None (occurrence: None)
  Receive Date: 20120426
  Receipt Date: 20120416
  Transmission Date: 20120825
  Serious: Yes (Hospitalization)
  Sender: FDA-Public Use
  Company Number: PHEH2012US007013

PATIENT
  Sex: Male

DRUGS (9)
  1. FUROSEMIDE [Concomitant]
  2. ALLOPURINOL [Concomitant]
  3. GABAPENTIN [Concomitant]
     Indication: NEUROPATHY PERIPHERAL
  4. PLAVIX [Concomitant]
  5. INSULIN [Concomitant]
  6. COREG [Concomitant]
  7. ASPIRIN [Concomitant]
  8. GLEEVEC [Suspect]
     Indication: CHRONIC MYELOID LEUKAEMIA
     Dosage: 400 MG, QD
     Route: 048
     Dates: start: 20100401
  9. ISOCARDIDE [Concomitant]

REACTIONS (5)
  - DIZZINESS [None]
  - SYNCOPE [None]
  - ASTHMA [None]
  - ORTHOSTATIC HYPOTENSION [None]
  - COUGH [None]
